FAERS Safety Report 6268042-1 (Version None)
Quarter: 2009Q3

REPORT INFORMATION
  Report Type: 
  Country: None (occurrence: None)
  Receive Date: 20090713
  Receipt Date: 20090630
  Transmission Date: 20100115
  Serious: Yes (Hospitalization)
  Sender: FDA-Public Use
  Company Number: GB-DEXPHARM-20090978

PATIENT
  Sex: Male

DRUGS (2)
  1. OMEPRAZOLE [Suspect]
     Indication: PORTAL HYPERTENSIVE GASTROPATHY
  2. UNSPECIFIED ANTI-PSYCHOTICS [Concomitant]

REACTIONS (5)
  - ELECTROCARDIOGRAM QT PROLONGED [None]
  - HYPOCALCAEMIA [None]
  - HYPOMAGNESAEMIA [None]
  - PYREXIA [None]
  - URINARY INCONTINENCE [None]
